FAERS Safety Report 5154626-0 (Version None)
Quarter: 2006Q4

REPORT INFORMATION
  Report Type: 
  Country: None (occurrence: None)
  Receive Date: 20061113
  Receipt Date: 19980328
  Transmission Date: 20070319
  Serious: Yes (Death, Life-Threatening)
  Sender: FDA-Public Use
  Company Number: 2006119672

PATIENT
  Age: 67 Year
  Sex: Male

DRUGS (5)
  1. IRINOTECAN HCL [Suspect]
     Indication: RECTAL CANCER METASTATIC
     Dosage: 530 MG, INTRAVENOUS
     Route: 042
     Dates: start: 19980317, end: 19980317
  2. ALLOPURINOL [Concomitant]
  3. DEXABENE                      (DEXAMETHASONE SODIUM PHOSPHATE) [Concomitant]
  4. ZANTIC            (RANITIDINE HYDROCHLORIDE) [Concomitant]
  5. ZOFRAN [Concomitant]

REACTIONS (6)
  - ATRIAL FIBRILLATION [None]
  - LEUKOPENIA [None]
  - MALIGNANT NEOPLASM PROGRESSION [None]
  - RECTAL CANCER METASTATIC [None]
  - SEPSIS [None]
  - THROMBOCYTOPENIA [None]
